FAERS Safety Report 11184870 (Version 1)
Quarter: 2015Q2

REPORT INFORMATION
  Report Type: Spontaneous
  Country: FR (occurrence: FR)
  Receive Date: 20150612
  Receipt Date: 20150612
  Transmission Date: 20150821
  Serious: Yes (Other)
  Sender: FDA-Public Use
  Company Number: ALCN2015FR003665

PATIENT
  Age: 16 Month
  Sex: Female
  Weight: 9 kg

DRUGS (1)
  1. ATROPINE SULFATE. [Suspect]
     Active Substance: ATROPINE SULFATE
     Indication: OPHTHALMOLOGICAL EXAMINATION
     Dosage: 1 GTT, BID
     Route: 047
     Dates: start: 20150407, end: 20150411

REACTIONS (2)
  - Hyperthermia [Recovered/Resolved]
  - Agitation [Recovered/Resolved]

NARRATIVE: CASE EVENT DATE: 20150407
